FAERS Safety Report 9596115 (Version 3)
Quarter: 2013Q4

REPORT INFORMATION
  Report Type: Spontaneous
  Country: US (occurrence: US)
  Receive Date: 20131004
  Receipt Date: 20131023
  Transmission Date: 20140711
  Serious: Yes (Hospitalization, Other)
  Sender: FDA-Public Use
  Company Number: US-GILEAD-2013-0084680

PATIENT
  Sex: Male

DRUGS (4)
  1. LETAIRIS [Suspect]
     Indication: PULMONARY ARTERIAL HYPERTENSION
     Dosage: 5 MG, QD
     Route: 048
     Dates: start: 20130430
  2. LETAIRIS [Suspect]
     Indication: SCLERODERMA
  3. REMODULIN [Suspect]
     Indication: PRODUCT USED FOR UNKNOWN INDICATION
     Route: 042
  4. ADCIRCA [Concomitant]

REACTIONS (6)
  - Pulmonary arterial hypertension [Unknown]
  - Pain in jaw [Unknown]
  - Diarrhoea [Unknown]
  - Pain in extremity [Unknown]
  - Headache [Unknown]
  - Flushing [Unknown]
